FAERS Safety Report 9630005 (Version 2)
Quarter: 2013Q4

REPORT INFORMATION
  Report Type: Spontaneous
  Country: JP (occurrence: JP)
  Receive Date: 20131017
  Receipt Date: 20131017
  Transmission Date: 20140711
  Serious: Yes (Hospitalization, Other)
  Sender: FDA-Public Use
  Company Number: PHHY2013JP024472

PATIENT
  Age: 42 Year
  Sex: Male

DRUGS (1)
  1. ZOMETA [Suspect]
     Indication: HYPERCALCAEMIA
     Dosage: 4 MG, PER ADMINISTRATION
     Route: 041

REACTIONS (5)
  - Renal disorder [Unknown]
  - Nephrocalcinosis [Unknown]
  - Parathyroid tumour [Unknown]
  - Tetanus [Not Recovered/Not Resolved]
  - Hypocalcaemia [Not Recovered/Not Resolved]
